FAERS Safety Report 8818177 (Version 2)
Quarter: 2012Q4

REPORT INFORMATION
  Report Type: 
  Country: GB (occurrence: US)
  Receive Date: 20121001
  Receipt Date: 20121102
  Transmission Date: 20130627
  Serious: Yes (Hospitalization)
  Sender: FDA-Public Use
  Company Number: US-BRISTOL-MYERS SQUIBB COMPANY-16978660

PATIENT
  Age: 54 Year
  Sex: Female

DRUGS (3)
  1. ESTRACE [Suspect]
     Indication: HORMONE REPLACEMENT THERAPY
     Dosage: low dose.
  2. BISACODYL [Suspect]
     Indication: SURGERY
     Dosage: 3tabs
  3. BISACODYL [Suspect]
     Indication: CONSTIPATION
     Dosage: 3tabs

REACTIONS (1)
  - Colitis ischaemic [Recovered/Resolved]
